FAERS Safety Report 6603798-7 (Version None)
Quarter: 2010Q1

REPORT INFORMATION
  Report Type: 
  Country: None (occurrence: None)
  Receive Date: 20100226
  Receipt Date: 20090204
  Transmission Date: 20100710
  Serious: No
  Sender: FDA-Public Use
  Company Number: A0766870A

PATIENT
  Age: 25 Year
  Sex: Male

DRUGS (4)
  1. LAMICTAL CD [Suspect]
     Indication: DEPRESSION
     Dosage: 100MG PER DAY
     Route: 048
     Dates: start: 20070101
  2. WELLBUTRIN XL [Suspect]
     Indication: DEPRESSION
     Dosage: 150MG PER DAY
     Route: 048
     Dates: start: 20070101
  3. PROPECIA [Concomitant]
  4. VITAMIN [Concomitant]

REACTIONS (1)
  - ALOPECIA [None]
